FAERS Safety Report 11663772 (Version 3)
Quarter: 2015Q4

REPORT INFORMATION
  Report Type: Report from Study
  Country: US (occurrence: US)
  Receive Date: 20151027
  Receipt Date: 20151029
  Transmission Date: 20160304
  Serious: No
  Sender: FDA-Public Use
  Company Number: PHEH2014US021996

PATIENT
  Sex: Female

DRUGS (1)
  1. EXJADE [Suspect]
     Active Substance: DEFERASIROX
     Indication: IRON OVERLOAD
     Dosage: 1000 MG, QD, MIX 2 TABS IN 3.5 OUNCES OF WATER, ORANGE JUICE OR APPLE JUICE AND DRINK ONCE DAILY
     Route: 048

REACTIONS (1)
  - Malaise [Unknown]
